FAERS Safety Report 5651972-9 (Version None)
Quarter: 2008Q1

REPORT INFORMATION
  Report Type: 
  Country: None (occurrence: None)
  Receive Date: 20080304
  Receipt Date: 20080220
  Transmission Date: 20080703
  Serious: Yes (Hospitalization)
  Sender: FDA-Public Use
  Company Number: 2008BI000387

PATIENT
  Age: 38 Year
  Sex: Female

DRUGS (1)
  1. AVONEX [Suspect]
     Indication: MULTIPLE SCLEROSIS
     Dosage: 30 UG;QW;IM
     Route: 030
     Dates: start: 20030121

REACTIONS (6)
  - DYSFUNCTIONAL UTERINE BLEEDING [None]
  - FALLOPIAN TUBE DISORDER [None]
  - MUSCLE SPASMS [None]
  - PROCEDURAL COMPLICATION [None]
  - UTERINE RUPTURE [None]
  - WRONG TECHNIQUE IN DRUG USAGE PROCESS [None]
